FAERS Safety Report 9080071 (Version 3)
Quarter: 2013Q1

REPORT INFORMATION
  Report Type: Spontaneous
  Country: CA (occurrence: CA)
  Receive Date: 20130218
  Receipt Date: 20130302
  Transmission Date: 20140127
  Serious: Yes (Other)
  Sender: FDA-Public Use
  Company Number: PHHY2013CA015053

PATIENT
  Age: 10 Year
  Sex: Female

DRUGS (9)
  1. TOPIRAMATE [Suspect]
     Indication: CONVULSION
     Dosage: 25 MG, IN THE MORNING
  2. TOPIRAMATE [Suspect]
     Dosage: 12.5 MG, IN THE EVENING
  3. TOPIRAMATE [Suspect]
     Dosage: 25 MG, AT NIGHT
  4. VALPROIC ACID [Suspect]
     Indication: CONVULSION
     Dosage: 125 MG IN THE MORNING
  5. VALPROIC ACID [Suspect]
     Dosage: 62.5 MG IN THE EVENING
  6. VALPROIC ACID [Suspect]
     Dosage: 125 MG, AT NIGHT
  7. LANSOPRAZOLE [Concomitant]
     Dosage: 15 MG, BID
  8. CARNITINE [Concomitant]
     Dosage: 50 MG, BID
  9. CALCIUM CARBONATE [Concomitant]
     Dosage: 125 MG DAILY

REACTIONS (10)
  - Nephrocalcinosis [Recovering/Resolving]
  - Fanconi syndrome [Unknown]
  - Glycosuria [Recovering/Resolving]
  - Proteinuria [Recovering/Resolving]
  - Hypophosphataemic rickets [Recovered/Resolved]
  - Blood alkaline phosphatase increased [Unknown]
  - Renal tubular acidosis [Unknown]
  - Metabolic acidosis [Recovering/Resolving]
  - Osteopenia [Unknown]
  - Blood pressure decreased [Unknown]
